FAERS Safety Report 5008479-1 (Version None)
Quarter: 2006Q2

REPORT INFORMATION
  Report Type: 
  Country: None (occurrence: None)
  Receive Date: 20060523
  Receipt Date: 20060516
  Transmission Date: 20061013
  Serious: Yes (Death)
  Sender: FDA-Public Use
  Company Number: US-AVENTIS-200615302GDDC

PATIENT
  Age: 60 Year
  Sex: Female
  Weight: 39 kg

DRUGS (2)
  1. DOCETAXEL [Suspect]
     Indication: SQUAMOUS CELL CARCINOMA
     Route: 042
     Dates: start: 20060508, end: 20060508
  2. CODE UNBROKEN [Suspect]
     Indication: SQUAMOUS CELL CARCINOMA
     Route: 048
     Dates: end: 20060514

REACTIONS (4)
  - OBSTRUCTIVE AIRWAYS DISORDER [None]
  - REFUSAL OF TREATMENT BY PATIENT [None]
  - SUDDEN DEATH [None]
  - TRACHEOSTOMY MALFUNCTION [None]
